FAERS Safety Report 5405951-7 (Version None)
Quarter: 2007Q3

REPORT INFORMATION
  Report Type: 
  Country: None (occurrence: None)
  Receive Date: 20070802
  Receipt Date: 20070718
  Transmission Date: 20080115
  Serious: Yes (Hospitalization)
  Sender: FDA-Public Use
  Company Number: ABX40-07-0627

PATIENT
  Age: 41 Year
  Sex: Female

DRUGS (10)
  1. ABRAXANE [Suspect]
     Indication: BREAST CANCER
     Dosage: LAST DOSE PRIOR TO SAE ON 14-FEB-07, INTRAVENOUS
     Route: 042
     Dates: start: 20061108
  2. AVASTIN [Suspect]
     Indication: BREAST CANCER
     Dosage: LAST DOSE PRIOR TO SAE ON 20-JUN-07
     Dates: start: 20061108
  3. CYTOXAN [Suspect]
     Indication: BREAST CANCER
     Dosage: LAST DOSE PRIOR TO SAE ON 20-JUN-07, INTRAVENOUS
     Route: 042
     Dates: start: 20061108
  4. ADRIAMYCIN (ADRIAMYCIN (DOXORUBICIN) [Suspect]
     Indication: BREAST CANCER
     Dosage: LAST DOSE PRIOR TO SAE ON 20-JUN-07, INTRAVENOUS
     Route: 042
     Dates: start: 20061108
  5. NEULASTA [Suspect]
     Indication: DRUG USE FOR UNKNOWN INDICATION
     Dosage: SUBCUTANEOUS
     Route: 058
     Dates: start: 20061109
  6. APREPITANT [Concomitant]
  7. BISOPROLOL FUMARATE/HCTZ [Concomitant]
  8. DEXAMETHASONE TAB [Concomitant]
  9. DOCUSATE SODIUM (DOCUSATE SODIUM) [Concomitant]
  10. LORAZEPAM [Concomitant]

REACTIONS (7)
  - ABDOMINAL PAIN UPPER [None]
  - CHEST PAIN [None]
  - CONDITION AGGRAVATED [None]
  - HYPOTHYROIDISM [None]
  - MYOPATHY [None]
  - PAIN IN EXTREMITY [None]
  - THYROIDITIS [None]
